FAERS Safety Report 7690147-9 (Version None)
Quarter: 2011Q3

REPORT INFORMATION
  Report Type: 
  Country: None (occurrence: None)
  Receive Date: 20110811
  Receipt Date: 20110801
  Transmission Date: 20111222
  Serious: Yes (Other)
  Sender: FDA-Public Use
  Company Number: WAES 1104USA03346

PATIENT
  Age: 69 Year
  Sex: Female

DRUGS (13)
  1. PLACEBO [Suspect]
     Indication: ACUTE CORONARY SYNDROME
     Route: 048
     Dates: start: 20061214
  2. PLAVIX [Concomitant]
  3. METFORMIN [Concomitant]
  4. PERINDOPRIL ERBUMINE [Concomitant]
  5. GLAZIDE [Concomitant]
  6. LERCANIDIPINE [Concomitant]
  7. LERCANIIDIPINE [Concomitant]
  8. PRAZOSIN HCL [Concomitant]
  9. PLACEBO [Suspect]
     Indication: ACUTE CORONARY SYNDROME
     Route: 048
     Dates: start: 20061214
  10. HYDROCHLOROTHIAZIDE (+) OLMESARTAN MEDOX [Concomitant]
  11. VYTORIN [Suspect]
     Indication: ACUTE CORONARY SYNDROME
     Dosage: 10-40 MG/DAILY
     Route: 048
     Dates: start: 20061214
  12. METOPROLOL SUCCINATE [Concomitant]
  13. ASPIRIN [Concomitant]

REACTIONS (4)
  - IRON DEFICIENCY [None]
  - BASAL CELL CARCINOMA [None]
  - COLONIC POLYP [None]
  - DUODENAL POLYP [None]
